FAERS Safety Report 15471424 (Version 3)
Quarter: 2018Q4

REPORT INFORMATION
  Report Type: Spontaneous
  Country: US (occurrence: US)
  Receive Date: 20181007
  Receipt Date: 20181019
  Transmission Date: 20190205
  Serious: Yes (Other)
  Sender: FDA-Public Use
  Company Number: US-JNJFOC-20180920532

PATIENT
  Sex: Male

DRUGS (1)
  1. RISPERDAL [Suspect]
     Active Substance: RISPERIDONE
     Indication: PRODUCT USED FOR UNKNOWN INDICATION
     Route: 065

REACTIONS (4)
  - Skin papilloma [Unknown]
  - Cellulitis [Unknown]
  - Blister [Unknown]
  - Skin exfoliation [Unknown]

NARRATIVE: CASE EVENT DATE: 201808
